FAERS Safety Report 11692363 (Version 1)
Quarter: 2015Q4

REPORT INFORMATION
  Report Type: Spontaneous
  Country: US (occurrence: None)
  Receive Date: 20151102
  Receipt Date: 20151102
  Transmission Date: 20160304
  Serious: No
  Sender: FDA-Public Use
  Company Number: None

PATIENT
  Sex: Female

DRUGS (2)
  1. IBRANCE [Suspect]
     Active Substance: PALBOCICLIB
     Indication: BREAST CANCER
     Dosage: 100MG DAILY X 21 PO
     Route: 048
     Dates: start: 20150630
  2. DEXAMETHASON [Concomitant]
     Active Substance: DEXAMETHASONE

REACTIONS (4)
  - Nausea [None]
  - Fatigue [None]
  - Dysuria [None]
  - Dizziness [None]
